FAERS Safety Report 17869147 (Version 1)
Quarter: 2020Q2

REPORT INFORMATION
  Report Type: Spontaneous
  Country: CA (occurrence: CA)
  Receive Date: 20200608
  Receipt Date: 20200608
  Transmission Date: 20200714
  Serious: Yes (Hospitalization)
  Sender: FDA-Public Use
  Company Number: CA-ROCHE-2614535

PATIENT
  Age: 42 Year
  Sex: Female

DRUGS (5)
  1. BELIMUMAB [Suspect]
     Active Substance: BELIMUMAB
     Indication: SYSTEMIC LUPUS ERYTHEMATOSUS
     Route: 065
  2. DESOXIMETASONE. [Concomitant]
     Active Substance: DESOXIMETASONE
  3. CELLCEPT [Suspect]
     Active Substance: MYCOPHENOLATE MOFETIL\MYCOPHENOLATE MOFETIL HYDROCHLORIDE
     Indication: PRODUCT USED FOR UNKNOWN INDICATION
     Route: 065
  4. COUMADIN [Suspect]
     Active Substance: WARFARIN SODIUM
     Indication: PRODUCT USED FOR UNKNOWN INDICATION
     Route: 065
  5. VITAMIN K1 [Suspect]
     Active Substance: PHYTONADIONE
     Indication: PRODUCT USED FOR UNKNOWN INDICATION
     Route: 065

REACTIONS (15)
  - Diarrhoea [Unknown]
  - Embolism [Unknown]
  - Dyspnoea exertional [Unknown]
  - Fatigue [Unknown]
  - Anaemia [Unknown]
  - Renal vascular thrombosis [Unknown]
  - Blood test abnormal [Unknown]
  - Headache [Unknown]
  - Feeding disorder [Unknown]
  - Pallor [Unknown]
  - Pulmonary pain [Unknown]
  - Respiratory disorder [Unknown]
  - Asthenia [Unknown]
  - Musculoskeletal pain [Unknown]
  - Vomiting [Unknown]
